FAERS Safety Report 12439327 (Version 1)
Quarter: 2016Q2

REPORT INFORMATION
  Report Type: Spontaneous
  Country: US (occurrence: US)
  Receive Date: 20160606
  Receipt Date: 20160606
  Transmission Date: 20160815
  Serious: Yes (Hospitalization)
  Sender: FDA-Public Use
  Company Number: US-GLAXOSMITHKLINE-US2016080114

PATIENT
  Age: 66 Year
  Sex: Female

DRUGS (20)
  1. SYNTHROID [Concomitant]
     Active Substance: LEVOTHYROXINE SODIUM
  2. TOPROL XL [Concomitant]
     Active Substance: METOPROLOL SUCCINATE
  3. FLONASE [Concomitant]
     Active Substance: FLUTICASONE PROPIONATE
  4. ZESTRIL [Concomitant]
     Active Substance: LISINOPRIL
  5. LASIX [Concomitant]
     Active Substance: FUROSEMIDE
  6. PROTONIX (PANTOPRAZOLE SODIUM) [Concomitant]
  7. ALBUTEROL. [Concomitant]
     Active Substance: ALBUTEROL
  8. CLARITIN ALLERGY (LORATADINE) [Concomitant]
  9. COUMADIN [Concomitant]
     Active Substance: WARFARIN SODIUM
  10. HUMULIN R [Concomitant]
     Active Substance: INSULIN HUMAN
  11. NORCO [Concomitant]
     Active Substance: ACETAMINOPHEN\HYDROCODONE BITARTRATE
  12. ADVAIR DISKUS [Suspect]
     Active Substance: FLUTICASONE PROPIONATE\SALMETEROL XINAFOATE
     Indication: PRODUCT USED FOR UNKNOWN INDICATION
     Dosage: 1 PUFF(S), BID
     Route: 055
  13. PROAIR HFA [Concomitant]
     Active Substance: ALBUTEROL SULFATE
  14. COLACE [Concomitant]
     Active Substance: DOCUSATE SODIUM
  15. ZAROXOLYN [Concomitant]
     Active Substance: METOLAZONE
  16. ZOLOFT [Concomitant]
     Active Substance: SERTRALINE HYDROCHLORIDE
  17. AMLACTIN [Concomitant]
     Active Substance: AMMONIUM LACTATE
  18. K DUR [Concomitant]
  19. LIPITOR [Concomitant]
     Active Substance: ATORVASTATIN CALCIUM
  20. ZANAFLEX [Concomitant]
     Active Substance: TIZANIDINE HYDROCHLORIDE

REACTIONS (1)
  - Arterial disorder [Recovered/Resolved]

NARRATIVE: CASE EVENT DATE: 201602
